FAERS Safety Report 11101696 (Version 2)
Quarter: 2015Q2

REPORT INFORMATION
  Report Type: Report from Study
  Country: NL (occurrence: NL)
  Receive Date: 20150508
  Receipt Date: 20150520
  Transmission Date: 20150821
  Serious: Yes (Other)
  Sender: FDA-Public Use
  Company Number: PHHY2015NL053408

PATIENT
  Sex: Female

DRUGS (1)
  1. STI571 [Suspect]
     Active Substance: IMATINIB MESYLATE
     Indication: PRODUCT USED FOR UNKNOWN INDICATION
     Dosage: UNK
     Route: 065

REACTIONS (3)
  - Premature labour [Unknown]
  - Maternal exposure during pregnancy [Unknown]
  - Preterm premature rupture of membranes [Unknown]

NARRATIVE: CASE EVENT DATE: 20131209
